FAERS Safety Report 7564407-6 (Version None)
Quarter: 2011Q2

REPORT INFORMATION
  Report Type: 
  Country: None (occurrence: None)
  Receive Date: 20110622
  Receipt Date: 20110610
  Transmission Date: 20111010
  Serious: Yes (Death, Other)
  Sender: FDA-Public Use
  Company Number: PHHY2011NL54014

PATIENT
  Sex: Male

DRUGS (3)
  1. ZOMETA [Suspect]
     Dosage: 4MG/5ML, UNK
     Dates: start: 20110120
  2. ZOMETA [Suspect]
     Dosage: 4MG/5ML, UNK
     Dates: start: 20110610, end: 20110610
  3. ZOMETA [Suspect]
     Indication: PROSTATE CANCER METASTATIC
     Dosage: 4MG/5ML, UNK

REACTIONS (4)
  - NEOPLASM MALIGNANT [None]
  - INTESTINAL HAEMORRHAGE [None]
  - NEOPLASM PROGRESSION [None]
  - TERMINAL STATE [None]
